FAERS Safety Report 10232317 (Version 1)
Quarter: 2014Q2

REPORT INFORMATION
  Report Type: Spontaneous
  Country: US (occurrence: None)
  Receive Date: 20140610
  Receipt Date: 20140610
  Transmission Date: 20141212
  Serious: Yes (Hospitalization)
  Sender: FDA-Public Use
  Company Number: None

PATIENT
  Age: 60 Year
  Sex: Male

DRUGS (6)
  1. TASIGNA [Suspect]
     Indication: CHRONIC MYELOID LEUKAEMIA
     Route: 048
     Dates: start: 20140315, end: 20140609
  2. ASPIRIN [Concomitant]
  3. LISINOPRIL [Concomitant]
  4. INSULIN [Concomitant]
  5. METFORMIN [Concomitant]
  6. GABAPENTIN [Concomitant]

REACTIONS (1)
  - Cerebrovascular accident [None]
